FAERS Safety Report 5194425-7 (Version None)
Quarter: 2006Q4

REPORT INFORMATION
  Report Type: 
  Country: None (occurrence: None)
  Receive Date: 20061222
  Receipt Date: 20061214
  Transmission Date: 20070319
  Serious: Yes (Other)
  Sender: FDA-Public Use
  Company Number: 233932K06USA

PATIENT
  Age: 58 Year
  Sex: Female

DRUGS (8)
  1. REBIF [Suspect]
     Indication: MULTIPLE SCLEROSIS
     Dosage: 44 MCG, 3 IN 1 WEEKS, SUBCUTANEOUS
     Route: 058
     Dates: start: 20051201, end: 20060601
  2. PREMARIN [Concomitant]
  3. BACLOFEN [Concomitant]
  4. NEURONTIN [Concomitant]
  5. PROVIGIL [Concomitant]
  6. CELEXA [Concomitant]
  7. PRAVACHOL [Concomitant]
  8. FIORICET (AXOTRAL) [Concomitant]

REACTIONS (3)
  - RETINAL INFARCTION [None]
  - RETINOPATHY [None]
  - WHITE BLOOD CELL COUNT DECREASED [None]
